FAERS Safety Report 9964064 (Version 2)
Quarter: 2014Q2

REPORT INFORMATION
  Report Type: Report from Study
  Country: JP (occurrence: JP)
  Receive Date: 20140305
  Receipt Date: 20140618
  Transmission Date: 20141212
  Serious: Yes (Other)
  Sender: FDA-Public Use
  Company Number: JP-VIIV HEALTHCARE LIMITED-B0973809A

PATIENT
  Age: 50 Year
  Sex: Male

DRUGS (19)
  1. LEXIVA [Suspect]
     Indication: HIV INFECTION
     Dosage: 1400MG PER DAY
     Route: 048
     Dates: start: 20090423, end: 20110904
  2. LEXIVA [Suspect]
     Indication: HIV INFECTION
     Dosage: 700MG TWICE PER DAY
     Route: 048
     Dates: start: 20121106
  3. EPZICOM [Suspect]
     Indication: HIV INFECTION
     Route: 048
     Dates: start: 20070322
  4. NORVIR SOFT [Suspect]
     Indication: HIV INFECTION
     Route: 048
     Dates: start: 20050908, end: 20110904
  5. NORVIR [Suspect]
     Indication: HIV INFECTION
     Route: 048
     Dates: start: 20121106
  6. REYATAZ [Suspect]
     Indication: HIV INFECTION
     Route: 048
     Dates: start: 20050908, end: 20090422
  7. ISENTRESS [Concomitant]
     Indication: HIV INFECTION
     Route: 048
     Dates: start: 20110905, end: 20121105
  8. MYSLEE [Concomitant]
     Indication: INSOMNIA
     Route: 048
  9. LIPIDIL [Concomitant]
     Indication: HYPERLIPIDAEMIA
     Dosage: 100MG PER DAY
     Route: 048
     Dates: end: 20121008
  10. GASTER D [Concomitant]
     Indication: GASTRITIS
     Dosage: 10MG PER DAY
     Route: 048
     Dates: end: 20080521
  11. LENDORMIN D [Concomitant]
     Indication: INSOMNIA
     Route: 048
     Dates: start: 20080522
  12. RHYTHMY [Concomitant]
     Indication: INSOMNIA
     Route: 048
     Dates: start: 20080522, end: 20090122
  13. PONTAL [Concomitant]
     Indication: HAEMOPHILIC ARTHROPATHY
     Route: 048
     Dates: end: 20121008
  14. ADVATE [Concomitant]
     Indication: FACTOR VIII DEFICIENCY
  15. MEILAX [Concomitant]
     Indication: INSOMNIA
     Route: 048
     Dates: start: 20090123
  16. BEZATOL SR [Concomitant]
     Indication: HYPERLIPIDAEMIA
     Dosage: 200MG TWICE PER DAY
     Route: 048
     Dates: start: 20121009
  17. BONALON [Concomitant]
     Indication: OSTEOPOROSIS
     Route: 048
     Dates: start: 20121009
  18. PROMAC [Concomitant]
     Indication: GASTRITIS
     Dosage: 1IUAX TWICE PER DAY
     Route: 048
     Dates: start: 20130219
  19. URSO [Concomitant]
     Indication: CHRONIC HEPATITIS
     Dosage: 200MG THREE TIMES PER DAY
     Route: 048
     Dates: start: 20130219

REACTIONS (3)
  - Chronic hepatitis [Not Recovered/Not Resolved]
  - Hyperlipidaemia [Recovering/Resolving]
  - Osteoporosis [Not Recovered/Not Resolved]
